FAERS Safety Report 21016457 (Version 1)
Quarter: 2022Q2

REPORT INFORMATION
  Report Type: Spontaneous
  Country: US (occurrence: None)
  Receive Date: 20220627
  Receipt Date: 20220627
  Transmission Date: 20220721
  Serious: Yes (Other)
  Sender: FDA-Public Use
  Company Number: None

PATIENT
  Age: 26 Year
  Sex: Female
  Weight: 60.75 kg

DRUGS (3)
  1. ALKA-SELTZER PLUS MAXIMUM STRENGTH DAY AND NIGHT COLD AND FLU POWERMAX [Suspect]
     Active Substance: ACETAMINOPHEN\DEXTROMETHORPHAN HYDROBROMIDE\DOXYLAMINE SUCCINATE\PHENYLEPHRINE HYDROCHLORIDE
     Indication: Nasopharyngitis
     Dosage: OTHER QUANTITY : 2 CAPSULE(S);?FREQUENCY : AS NEEDED;?
     Route: 048
     Dates: start: 20220301, end: 20220607
  2. MIRENA [Concomitant]
     Active Substance: LEVONORGESTREL
  3. ZOLOFT [Concomitant]
     Active Substance: SERTRALINE HYDROCHLORIDE

REACTIONS (11)
  - Dizziness [None]
  - Nausea [None]
  - Vision blurred [None]
  - Abdominal pain upper [None]
  - Diarrhoea [None]
  - Feeling hot [None]
  - Hyperhidrosis [None]
  - Nervousness [None]
  - Syncope [None]
  - Asthenia [None]
  - Overdose [None]

NARRATIVE: CASE EVENT DATE: 20220607
